FAERS Safety Report 16765876 (Version 1)
Quarter: 2019Q3

REPORT INFORMATION
  Report Type: Spontaneous
  Country: US (occurrence: US)
  Receive Date: 20190903
  Receipt Date: 20190903
  Transmission Date: 20191005
  Serious: Yes (Other)
  Sender: FDA-Public Use
  Company Number: US-AKORN PHARMACEUTICALS-2019AKN01828

PATIENT
  Age: 32 Year
  Sex: Female
  Weight: 83.9 kg

DRUGS (3)
  1. UNSPECIFIED BIRTH CONTROL [Concomitant]
     Active Substance: UNSPECIFIED INGREDIENT
  2. MYORISAN [Suspect]
     Active Substance: ISOTRETINOIN
     Indication: ACNE CYSTIC
     Dosage: 30 MG, 2X/DAY
     Route: 048
     Dates: start: 20190730, end: 201907
  3. KETOCONAZOLE SHAMPOO [Concomitant]
     Active Substance: KETOCONAZOLE

REACTIONS (1)
  - Breast cancer female [Not Recovered/Not Resolved]

NARRATIVE: CASE EVENT DATE: 201908
